FAERS Safety Report 8511634-7 (Version None)
Quarter: 2012Q3

REPORT INFORMATION
  Report Type: 
  Country: None (occurrence: None)
  Receive Date: 20120716
  Receipt Date: 20120711
  Transmission Date: 20120928
  Serious: Yes (Hospitalization, Other)
  Sender: FDA-Public Use
  Company Number: ES-PFIZER INC-2012167224

PATIENT
  Age: 42 Year
  Sex: Male

DRUGS (1)
  1. VARENICLINE TARTRATE [Suspect]
     Indication: SMOKING CESSATION THERAPY
     Dosage: UNK
     Dates: start: 20120524

REACTIONS (35)
  - MENTAL IMPAIRMENT [None]
  - ABNORMAL BEHAVIOUR [None]
  - COORDINATION ABNORMAL [None]
  - NAUSEA [None]
  - DRY MOUTH [None]
  - VOMITING [None]
  - PARAESTHESIA [None]
  - INCREASED APPETITE [None]
  - SOMNOLENCE [None]
  - ABDOMINAL DISTENSION [None]
  - DYSPEPSIA [None]
  - TREMOR [None]
  - FLATULENCE [None]
  - POLYURIA [None]
  - URINE OUTPUT INCREASED [None]
  - ANXIETY [None]
  - RESTLESSNESS [None]
  - HEADACHE [None]
  - HALLUCINATION [None]
  - DYSGEUSIA [None]
  - MUSCLE TIGHTNESS [None]
  - DEPRESSION [None]
  - INSOMNIA [None]
  - DIARRHOEA [None]
  - ABDOMINAL DISCOMFORT [None]
  - PANCREATITIS ACUTE [None]
  - SPEECH DISORDER [None]
  - AGITATION [None]
  - PANIC DISORDER [None]
  - ABNORMAL DREAMS [None]
  - CONSTIPATION [None]
  - SUICIDAL IDEATION [None]
  - MOOD SWINGS [None]
  - FATIGUE [None]
  - DIZZINESS [None]
